FAERS Safety Report 4402130-7 (Version None)
Quarter: 2004Q3

REPORT INFORMATION
  Report Type: 
  Country: None (occurrence: None)
  Receive Date: 20040714
  Receipt Date: 20040707
  Transmission Date: 20050211
  Serious: Yes (Other)
  Sender: FDA-Public Use
  Company Number: 200418445BWH

PATIENT
  Age: 57 Year
  Sex: Male
  Weight: 77.1115 kg

DRUGS (5)
  1. LEVITRA [Suspect]
     Indication: ERECTILE DYSFUNCTION
     Dosage: 10 MG, PRN, ORAL; 15 MG, TOTAL DAILY, ORAL
     Route: 048
     Dates: start: 20040401
  2. LEVITRA [Suspect]
     Indication: ERECTILE DYSFUNCTION
     Dosage: 10 MG, PRN, ORAL; 15 MG, TOTAL DAILY, ORAL
     Route: 048
     Dates: start: 20040620
  3. PAXIL [Concomitant]
  4. CLONAZEPAM [Concomitant]
  5. TOPROL-XL [Concomitant]

REACTIONS (4)
  - BLOOD URINE [None]
  - DRUG INEFFECTIVE [None]
  - ERECTILE DYSFUNCTION [None]
  - PHARMACEUTICAL PRODUCT COMPLAINT [None]
